FAERS Safety Report 13301341 (Version 1)
Quarter: 2017Q1

REPORT INFORMATION
  Report Type: Spontaneous
  Country: US (occurrence: US)
  Receive Date: 20170306
  Receipt Date: 20170306
  Transmission Date: 20170428
  Serious: Yes (Hospitalization)
  Sender: FDA-Public Use
  Company Number: None

PATIENT
  Age: 19 Year
  Sex: Male
  Weight: 56.7 kg

DRUGS (2)
  1. MELATONIN [Concomitant]
     Active Substance: MELATONIN
  2. ATIVAN [Suspect]
     Active Substance: LORAZEPAM
     Indication: ANXIETY
     Dates: start: 20170227, end: 20170227

REACTIONS (7)
  - Disorientation [None]
  - Suicidal ideation [None]
  - Confusional state [None]
  - Amnesia [None]
  - Somnolence [None]
  - Headache [None]
  - Dysarthria [None]

NARRATIVE: CASE EVENT DATE: 20170227
